FAERS Safety Report 24867572 (Version 1)
Quarter: 2025Q1

REPORT INFORMATION
  Report Type: Spontaneous
  Country: DK (occurrence: DK)
  Receive Date: 20250121
  Receipt Date: 20250121
  Transmission Date: 20250409
  Serious: Yes (Death, Hospitalization, Other)
  Sender: NOVAST LABORATORIES LTD
  Company Number: DK-NOVAST LABORATORIES INC.-2025NOV000004

PATIENT
  Age: 67 Year
  Sex: Male
  Weight: 63 kg

DRUGS (5)
  1. CARBOPLATIN [Suspect]
     Active Substance: CARBOPLATIN
     Indication: Lung cancer metastatic
     Route: 065
  2. CARBOPLATIN [Suspect]
     Active Substance: CARBOPLATIN
     Route: 065
  3. PEMETREXED [Suspect]
     Active Substance: PEMETREXED
     Indication: Lung cancer metastatic
     Route: 065
  4. PEMETREXED [Suspect]
     Active Substance: PEMETREXED
     Route: 065
  5. PEMBROLIZUMAB [Suspect]
     Active Substance: PEMBROLIZUMAB
     Indication: Lung cancer metastatic
     Route: 065

REACTIONS (2)
  - Acute hepatic failure [Fatal]
  - Product use in unapproved indication [Unknown]
